FAERS Safety Report 21078035 (Version 1)
Quarter: 2022Q3

REPORT INFORMATION
  Report Type: Report from Study
  Country: US (occurrence: US)
  Receive Date: 20220713
  Receipt Date: 20220713
  Transmission Date: 20221027
  Serious: No
  Sender: FDA-Public Use
  Company Number: US-VANDA PHARMACEUTICALS, INC-2021TASUS005357

PATIENT
  Sex: Female

DRUGS (3)
  1. HETLIOZ [Suspect]
     Active Substance: TASIMELTEON
     Indication: Non-24-hour sleep-wake disorder
     Dosage: 20 MILLIGRAM, HS
     Route: 048
     Dates: start: 202106
  2. HETLIOZ [Suspect]
     Active Substance: TASIMELTEON
     Dosage: 20 MILLIGRAM, 2 CAPSULES PER DAY
     Route: 048
     Dates: start: 202106
  3. HETLIOZ [Suspect]
     Active Substance: TASIMELTEON
     Dosage: 40 MILLIGRAM, QD
     Route: 048

REACTIONS (4)
  - Therapeutic product effect delayed [Unknown]
  - Prescribed overdose [Unknown]
  - Incorrect dose administered [Unknown]
  - Drug ineffective [Unknown]
